FAERS Safety Report 5294291-5 (Version None)
Quarter: 2007Q2

REPORT INFORMATION
  Report Type: 
  Country: None (occurrence: None)
  Receive Date: 20070412
  Receipt Date: 20070328
  Transmission Date: 20071010
  Serious: Yes (Other)
  Sender: FDA-Public Use
  Company Number: US-JNJFOC-20070306895

PATIENT
  Age: 65 Year
  Sex: Female
  Weight: 69.4 kg

DRUGS (16)
  1. REMICADE [Suspect]
     Indication: PSORIATIC ARTHROPATHY
     Route: 042
  2. GLYBURIDE [Concomitant]
  3. SYNTHROID [Concomitant]
  4. TRIAMTERENE AND HYDROCHLOROTHIAZIDE [Concomitant]
     Dosage: 75/50 MG 1/2 TAB
  5. ZETIA [Concomitant]
  6. LOPID [Concomitant]
  7. CARTIA XT [Concomitant]
  8. SINGULAIR [Concomitant]
  9. ALLEGRA [Concomitant]
  10. CLONAZEPAN [Concomitant]
     Dosage: 0.5 MG 1/4 PO TID
     Route: 048
  11. CELEXA [Concomitant]
  12. FOLIC ACID [Concomitant]
  13. PROTINIX [Concomitant]
  14. SELENIUM SULFIDE [Concomitant]
  15. CALCIUM [Concomitant]
     Dosage: ^1600^
  16. VITAMIN D [Concomitant]

REACTIONS (3)
  - BREAST MICROCALCIFICATION [None]
  - HEPATOMEGALY [None]
  - RENAL CYST [None]
